FAERS Safety Report 17098853 (Version 1)
Quarter: 2019Q4

REPORT INFORMATION
  Report Type: Spontaneous
  Country: US (occurrence: US)
  Receive Date: 20191105
  Receipt Date: 20191105
  Transmission Date: 20200122
  Serious: Yes (Life-Threatening)
  Sender: FDA-Public Use
  Company Number: None

PATIENT
  Age: 64 Year
  Sex: Female
  Weight: 59.88 kg

DRUGS (7)
  1. MELOXICAM 7.5MG [Suspect]
     Active Substance: MELOXICAM
     Indication: BURSITIS
     Dosage: 1 PILL DAILY MOUTH?6-8 WEEKS
     Route: 048
     Dates: start: 201909, end: 20191015
  2. TYROXINE [Concomitant]
  3. VITAMIN D [Concomitant]
     Active Substance: VITAMIN D NOS
  4. MULTI VITAMIN [Concomitant]
     Active Substance: VITAMINS
  5. MELOXICAM 7.5MG [Suspect]
     Active Substance: MELOXICAM
     Indication: INFLAMMATION
     Dosage: 1 PILL DAILY MOUTH?6-8 WEEKS
     Route: 048
     Dates: start: 201909, end: 20191015
  6. CALCIUM [Concomitant]
     Active Substance: CALCIUM
  7. ARMOUR THYROID [Concomitant]
     Active Substance: THYROID, PORCINE

REACTIONS (3)
  - Palpitations [None]
  - Vomiting [None]
  - Blood pressure increased [None]

NARRATIVE: CASE EVENT DATE: 20191014
